FAERS Safety Report 5668718-0 (Version None)
Quarter: 2008Q1

REPORT INFORMATION
  Report Type: 
  Country: None (occurrence: None)
  Receive Date: 20080311
  Receipt Date: 20080311
  Transmission Date: 20080703
  Serious: No
  Sender: FDA-Public Use
  Company Number: None

PATIENT
  Age: 83 Year
  Sex: Male
  Weight: 87.1 kg

DRUGS (1)
  1. PEMETREXED [Suspect]
     Dosage: 1000MG OTHER IV
     Route: 042
     Dates: start: 20080129, end: 20080129

REACTIONS (1)
  - DIARRHOEA [None]
